FAERS Safety Report 7430135-0 (Version None)
Quarter: 2011Q2

REPORT INFORMATION
  Report Type: 
  Country: None (occurrence: None)
  Receive Date: 20110421
  Receipt Date: 20100920
  Transmission Date: 20111010
  Serious: No
  Sender: FDA-Public Use
  Company Number: US-ASTRAZENECA-2010SE41665

PATIENT
  Sex: Female

DRUGS (7)
  1. SIMVASTATIN [Concomitant]
  2. VITAMIN D [Concomitant]
  3. CALCIUM [Concomitant]
  4. ASPIRIN [Concomitant]
  5. METOPROLOL SUCCINATE [Suspect]
     Indication: HYPERTENSION
     Route: 048
     Dates: start: 20100601
  6. GLUCOSAMINE AND CHONDROITIN [Concomitant]
  7. MULTI-VITAMIN [Concomitant]

REACTIONS (1)
  - MEDICATION RESIDUE [None]
